FAERS Safety Report 15336588 (Version 2)
Quarter: 2018Q3

REPORT INFORMATION
  Report Type: Spontaneous
  Country: US (occurrence: US)
  Receive Date: 20180830
  Receipt Date: 20180903
  Transmission Date: 20181010
  Serious: No
  Sender: FDA-Public Use
  Company Number: US-JNJFOC-20180818504

PATIENT
  Age: 36 Year
  Sex: Female
  Weight: 46.72 kg

DRUGS (1)
  1. STELARA [Suspect]
     Active Substance: USTEKINUMAB
     Indication: PSORIATIC ARTHROPATHY
     Route: 058
     Dates: start: 20180812

REACTIONS (5)
  - Paraesthesia [Unknown]
  - Accidental exposure to product [Unknown]
  - Syringe issue [Unknown]
  - Underdose [Unknown]
  - Pruritus [Unknown]

NARRATIVE: CASE EVENT DATE: 20180812
